FAERS Safety Report 8460099-2 (Version None)
Quarter: 2012Q2

REPORT INFORMATION
  Report Type: 
  Country: None (occurrence: None)
  Receive Date: 20120622
  Receipt Date: 20120611
  Transmission Date: 20120825
  Serious: Yes (Other)
  Sender: FDA-Public Use
  Company Number: JP-ELI_LILLY_AND_COMPANY-JP201206003393

PATIENT
  Sex: Female

DRUGS (1)
  1. HUMALOG MIX 75/25 [Suspect]
     Route: 058

REACTIONS (4)
  - LARGE INTESTINE CARCINOMA [None]
  - PNEUMONIA [None]
  - SURGERY [None]
  - ANAEMIA [None]
